FAERS Safety Report 8767250 (Version 5)
Quarter: 2013Q3

REPORT INFORMATION
  Report Type: Report from Study
  Country: JP (occurrence: JP)
  Receive Date: 20120904
  Receipt Date: 20130918
  Transmission Date: 20140515
  Serious: Yes (Other)
  Sender: FDA-Public Use
  Company Number: JP-VERTEX PHARMACEUTICAL INC.-2012-020346

PATIENT
  Age: 38 Year
  Sex: Female

DRUGS (23)
  1. PEGINTRON [Suspect]
     Dosage: 1.5 ?G/KG, QW
     Route: 058
     Dates: start: 20121031, end: 20121128
  2. URSO [Concomitant]
     Dosage: 600 MG, QD
     Route: 048
     Dates: end: 20121212
  3. NEUER [Concomitant]
     Dosage: 600 MG,QD
     Route: 048
     Dates: start: 20120620, end: 20120707
  4. REBAMIPIDE [Concomitant]
     Dosage: 300 MG, UNK
     Route: 048
     Dates: start: 20120708, end: 20121212
  5. VONFENAC [Concomitant]
     Dosage: 12.5 MG / DAY, PRN
     Route: 054
     Dates: start: 20120620
  6. VX-950 (TELAPREVIR) [Suspect]
     Indication: CHRONIC HEPATITIS C
     Dosage: 1500 MG, UNK
     Route: 048
     Dates: start: 20120620, end: 20120912
  7. REBETOL [Suspect]
     Indication: CHRONIC HEPATITIS C
     Dosage: 400 MG, QD
     Route: 048
     Dates: start: 20120620, end: 20120703
  8. REBETOL [Suspect]
     Dosage: 200 MG, QD
     Route: 048
     Dates: start: 20120704, end: 20120717
  9. REBETOL [Suspect]
     Dosage: 200 MG, QOD
     Route: 048
     Dates: start: 20120718, end: 20120821
  10. REBETOL [Suspect]
     Dosage: 200 MG, QD
     Route: 048
     Dates: start: 20120822, end: 20120828
  11. REBETOL [Suspect]
     Dosage: 200 MG, QOD
     Route: 048
     Dates: start: 20120829, end: 20120918
  12. REBETOL [Suspect]
     Dosage: 200 MG, QD
     Route: 048
     Dates: start: 20120919, end: 20121002
  13. REBETOL [Suspect]
     Dosage: 200 MG/ ON ODD DAYS, 400 MG/ ON EVEN DAYS
     Route: 048
     Dates: start: 20121003, end: 20121010
  14. REBETOL [Suspect]
     Dosage: 400 MG, QD
     Route: 048
     Dates: start: 20121011, end: 20121016
  15. REBETOL [Suspect]
     Dosage: 600 MG/ ON ODD DAYS, 400 MG/ ON EVEN DAYS
     Route: 048
     Dates: start: 20121017, end: 20121030
  16. REBETOL [Suspect]
     Dosage: 600 MG, QD
     Route: 048
     Dates: start: 20121031, end: 20121205
  17. PEGINTRON [Suspect]
     Indication: CHRONIC HEPATITIS C
     Dosage: 1.1 ?G/KG, QW
     Route: 058
     Dates: start: 20120620, end: 20120703
  18. PEGINTRON [Suspect]
     Dosage: 1.3 ?G/KG, QW
     Route: 058
     Dates: start: 20120704, end: 20120724
  19. PEGINTRON [Suspect]
     Dosage: 0.9 ?G/KG, QW
     Route: 058
     Dates: start: 20120725, end: 20120731
  20. PEGINTRON [Suspect]
     Dosage: 1.1 ?G/KG, QW
     Route: 058
     Dates: start: 20120801, end: 20120821
  21. PEGINTRON [Suspect]
     Dosage: 1.3 ?G/KG, QW
     Route: 058
     Dates: start: 20120822, end: 20120925
  22. PEGINTRON [Suspect]
     Dosage: 1.1 ?G/KG, QW
     Route: 058
     Dates: start: 20120926, end: 20121002
  23. PEGINTRON [Suspect]
     Dosage: 1.3 ?G/KG, QW
     Route: 058
     Dates: start: 20121003, end: 20121030

REACTIONS (2)
  - Neutrophil count decreased [Recovered/Resolved]
  - Neutrophil count decreased [Recovered/Resolved]
